FAERS Safety Report 17107459 (Version 1)
Quarter: 2019Q4

REPORT INFORMATION
  Report Type: Spontaneous
  Country: SE (occurrence: SE)
  Receive Date: 20191204
  Receipt Date: 20191204
  Transmission Date: 20200122
  Serious: Yes (Hospitalization, Other)
  Sender: FDA-Public Use
  Company Number: SE-SA-2019SA332552

PATIENT
  Age: 34 Year
  Sex: Female

DRUGS (2)
  1. ZOLPIDEM TARTRATE. [Suspect]
     Active Substance: ZOLPIDEM TARTRATE
     Dosage: 50 MG, UNK
     Route: 048
     Dates: start: 20181201, end: 20181201
  2. PROMETHAZINE HYDROCHLORIDE. [Suspect]
     Active Substance: PROMETHAZINE HYDROCHLORIDE
     Dosage: 225 MG, UNK
     Route: 048
     Dates: start: 20181201, end: 20181201

REACTIONS (3)
  - Intentional overdose [Unknown]
  - Intentional self-injury [Unknown]
  - Fatigue [Unknown]

NARRATIVE: CASE EVENT DATE: 20181201
